FAERS Safety Report 5112554-0 (Version None)
Quarter: 2006Q3

REPORT INFORMATION
  Report Type: 
  Country: None (occurrence: None)
  Receive Date: 20060922
  Receipt Date: 20060913
  Transmission Date: 20061208
  Serious: Yes (Life-Threatening, Congenital Anomaly)
  Sender: FDA-Public Use
  Company Number: FR-ABBOTT-06P-056-0343875-00

PATIENT
  Sex: Male
  Weight: 3.15 kg

DRUGS (1)
  1. LIPANTHYL TABLETS [Suspect]
     Indication: DRUG EXPOSURE DURING PREGNANCY
     Route: 065

REACTIONS (8)
  - CONVULSION [None]
  - CYANOSIS [None]
  - HYPOGLYCAEMIA [None]
  - HYPOSPADIAS [None]
  - HYPOTONIA [None]
  - MECONIUM IN AMNIOTIC FLUID [None]
  - OXYGEN SATURATION DECREASED [None]
  - SYSTEMIC INFLAMMATORY RESPONSE SYNDROME [None]
